FAERS Safety Report 24271076 (Version 2)
Quarter: 2024Q3

REPORT INFORMATION
  Report Type: Spontaneous
  Country: CN (occurrence: CN)
  Receive Date: 20240831
  Receipt Date: 20240831
  Transmission Date: 20241017
  Serious: Yes (Other)
  Sender: AZURITY PHARMACEUTICALS
  Company Number: CN-AZURITY PHARMACEUTICALS, INC.-AZR202408-000441

PATIENT
  Age: 74 Year
  Sex: Female

DRUGS (6)
  1. METHYLPREDNISOLONE ACETATE [Suspect]
     Active Substance: METHYLPREDNISOLONE ACETATE
     Indication: Pneumonitis
     Dosage: 80 MILLIGRAM, QD (80 MG/ DAY FOR THE FIRST WEEK)
     Route: 065
  2. METHYLPREDNISOLONE ACETATE [Suspect]
     Active Substance: METHYLPREDNISOLONE ACETATE
     Dosage: 20 MILLIGRAM, QD (20 MG/DAY)
     Route: 065
  3. METHYLPREDNISOLONE ACETATE [Suspect]
     Active Substance: METHYLPREDNISOLONE ACETATE
     Dosage: 40 MILLIGRAM, QD (40 MG/DAY)
     Route: 065
  4. TOCILIZUMAB [Suspect]
     Active Substance: TOCILIZUMAB
     Indication: COVID-19 pneumonia
     Dosage: 400 MILLIGRAM, SINGLE
     Route: 065
  5. MOXIFLOXACIN HYDROCHLORIDE [Concomitant]
     Active Substance: MOXIFLOXACIN HYDROCHLORIDE\MOXIFLOXACIN HYDROCHLORIDE MONOHYDRATE
     Indication: Pleural effusion
     Dosage: UNK
     Route: 065
  6. AMBROXOL HYDROCHLORIDE [Concomitant]
     Active Substance: AMBROXOL HYDROCHLORIDE
     Indication: Pleural effusion
     Dosage: UNK
     Route: 065

REACTIONS (3)
  - Pneumoretroperitoneum [Not Recovered/Not Resolved]
  - Pneumomediastinum [Not Recovered/Not Resolved]
  - Intestinal perforation [Recovering/Resolving]
